FAERS Safety Report 10085833 (Version 2)
Quarter: 2014Q2

REPORT INFORMATION
  Report Type: Spontaneous
  Country: NL (occurrence: None)
  Receive Date: 20140416
  Receipt Date: 20140528
  Transmission Date: 20141212
  Serious: Yes (Death, Hospitalization)
  Sender: FDA-Public Use
  Company Number: 2014AP002609

PATIENT
  Age: 33 Year
  Sex: Male

DRUGS (1)
  1. RISPERIDONE (RISPERIDONE) [Suspect]
     Indication: PRODUCT USED FOR UNKNOWN INDICATION

REACTIONS (7)
  - Epilepsy [None]
  - Syncope [None]
  - Coma [None]
  - Urine osmolarity increased [None]
  - Hyponatraemia [None]
  - Brain oedema [None]
  - Polydipsia [None]
